FAERS Safety Report 23930018 (Version 2)
Quarter: 2025Q2

REPORT INFORMATION
  Report Type: Spontaneous
  Country: US (occurrence: US)
  Receive Date: 20240601
  Receipt Date: 20250415
  Transmission Date: 20250716
  Serious: Yes (Other)
  Sender: AUROBINDO
  Company Number: US-AUROBINDO-AUR-APL-2024-026078

PATIENT
  Age: 57 Year
  Sex: Female

DRUGS (3)
  1. BUPROPION [Suspect]
     Active Substance: BUPROPION
     Indication: Product used for unknown indication
     Route: 065
  2. CHLORDIAZEPOXIDE [Suspect]
     Active Substance: CHLORDIAZEPOXIDE
     Indication: Product used for unknown indication
     Route: 065
  3. PROPRANOLOL [Suspect]
     Active Substance: PROPRANOLOL HYDROCHLORIDE
     Indication: Product used for unknown indication
     Route: 065

REACTIONS (10)
  - Generalised tonic-clonic seizure [Unknown]
  - Cardiogenic shock [Recovered/Resolved]
  - Acute kidney injury [Unknown]
  - Brain stem syndrome [Recovered/Resolved]
  - Coma [Unknown]
  - Myocardial ischaemia [Unknown]
  - Renal tubular necrosis [Unknown]
  - Ejection fraction decreased [Unknown]
  - Right ventricular dysfunction [Unknown]
  - Intentional overdose [Unknown]
